FAERS Safety Report 5620012-X (Version None)
Quarter: 2008Q1

REPORT INFORMATION
  Report Type: 
  Country: None (occurrence: None)
  Receive Date: 20080208
  Receipt Date: 20080205
  Transmission Date: 20080703
  Serious: Yes (Death)
  Sender: FDA-Public Use
  Company Number: JP-GENENTECH-255504

PATIENT
  Age: 61 Year
  Sex: Female

DRUGS (1)
  1. GRTPA [Suspect]
     Indication: CEREBRAL INFARCTION
     Route: 042

REACTIONS (1)
  - AORTIC DISSECTION [None]
